FAERS Safety Report 7274797-X (Version None)
Quarter: 2011Q1

REPORT INFORMATION
  Report Type: 
  Country: None (occurrence: None)
  Receive Date: 20110204
  Receipt Date: 20110202
  Transmission Date: 20110831
  Serious: Yes (Other)
  Sender: FDA-Public Use
  Company Number: IT-SANOFI-AVENTIS-2011SA003198

PATIENT
  Sex: Male

DRUGS (3)
  1. MULTAQ [Suspect]
     Indication: ATRIAL FIBRILLATION
     Route: 065
     Dates: start: 20101201, end: 20110101
  2. OLMESARTAN MEDOXOMIL [Concomitant]
  3. COUMADIN [Concomitant]

REACTIONS (4)
  - ASCITES [None]
  - DYSPNOEA [None]
  - ASTHENIA [None]
  - HEPATIC FAILURE [None]
